FAERS Safety Report 8956399 (Version 1)
Quarter: 2012Q4

REPORT INFORMATION
  Report Type: 
  Country: US (occurrence: US)
  Receive Date: 20121210
  Receipt Date: 20121210
  Transmission Date: 20130627
  Serious: Yes (Other)
  Sender: FDA-Public Use
  Company Number: US-SANOFI-AVENTIS-2012SA089492

PATIENT
  Age: 71 Year
  Sex: Female

DRUGS (1)
  1. MULTAQ [Suspect]
     Indication: PAROXYSMAL ATRIAL FIBRILLATION
     Route: 048

REACTIONS (4)
  - Pneumonia [Unknown]
  - Nausea [Recovered/Resolved]
  - Weight decreased [Recovered/Resolved]
  - Tooth infection [Not Recovered/Not Resolved]
